FAERS Safety Report 8226469-2 (Version None)
Quarter: 2012Q1

REPORT INFORMATION
  Report Type: 
  Country: None (occurrence: None)
  Receive Date: 20120322
  Receipt Date: 20120316
  Transmission Date: 20120608
  Serious: Yes (Hospitalization)
  Sender: FDA-Public Use
  Company Number: US-ASTRAZENECA-2012SE17091

PATIENT
  Age: 39 Year
  Sex: Female
  Weight: 136.1 kg

DRUGS (16)
  1. TYLENOL [Concomitant]
  2. SEROQUEL [Suspect]
     Dosage: THREE TABLETS
     Route: 048
  3. PRASTERONE [Concomitant]
  4. DEPO-PROVERA [Concomitant]
     Indication: CONTRACEPTION
     Dosage: MONTH
  5. SEROQUEL [Suspect]
     Route: 048
     Dates: start: 20111101
  6. XANAX [Concomitant]
  7. SEROQUEL [Suspect]
     Indication: INSOMNIA
     Route: 048
     Dates: start: 20110101, end: 20111101
  8. SEROQUEL [Suspect]
     Dosage: TWO
     Route: 048
  9. THORAZINE [Concomitant]
  10. LAMISIL [Concomitant]
  11. RISPERDAL [Concomitant]
  12. FIORINAL [Concomitant]
     Indication: HEADACHE
     Dosage: AS REQUIRED
  13. VITAMIN D [Concomitant]
     Dosage: 10000 UNIT
  14. ATENOLOL [Concomitant]
  15. CELEXA [Concomitant]
     Indication: ANTIDEPRESSANT THERAPY
  16. LORTAB [Concomitant]

REACTIONS (5)
  - OFF LABEL USE [None]
  - MAJOR DEPRESSION [None]
  - INCORRECT DOSE ADMINISTERED [None]
  - MENTAL DISORDER [None]
  - INSOMNIA [None]
